FAERS Safety Report 7516747-4 (Version None)
Quarter: 2011Q2

REPORT INFORMATION
  Report Type: 
  Country: None (occurrence: None)
  Receive Date: 20110526
  Receipt Date: 20110526
  Transmission Date: 20111010
  Serious: Yes (Life-Threatening, Hospitalization)
  Sender: FDA-Public Use
  Company Number: None

PATIENT
  Sex: Female
  Weight: 50 kg

DRUGS (3)
  1. LEVONORGESTREL AND ETHINYL ESTRADIOL [Suspect]
     Indication: ORAL CONTRACEPTION
     Dates: start: 20100101, end: 20110524
  2. LEVONORGESTREL AND ETHINYL ESTRADIOL [Suspect]
     Indication: ACNE
     Dates: start: 20100101, end: 20110524
  3. ANTICOAGULATION THERAPY [Concomitant]

REACTIONS (1)
  - PULMONARY EMBOLISM [None]
